FAERS Safety Report 9788556 (Version 1)
Quarter: 2013Q4

REPORT INFORMATION
  Report Type: Spontaneous
  Country: NL (occurrence: NL)
  Receive Date: 20131230
  Receipt Date: 20131230
  Transmission Date: 20140711
  Serious: Yes (Other)
  Sender: FDA-Public Use
  Company Number: NL-TEVA-453547ISR

PATIENT
  Age: 41 Year
  Sex: Male

DRUGS (3)
  1. BLEOMYCIN [Suspect]
     Indication: TESTIS CANCER
     Route: 065
  2. ETOPOSIDE [Concomitant]
     Indication: TESTIS CANCER
     Route: 065
  3. CISPLATIN [Concomitant]
     Indication: TESTIS CANCER
     Route: 065

REACTIONS (3)
  - Hepatic infiltration eosinophilic [Recovering/Resolving]
  - Pulmonary fibrosis [Recovering/Resolving]
  - Pneumonitis [Recovering/Resolving]
